FAERS Safety Report 12196456 (Version 2)
Quarter: 2016Q1

REPORT INFORMATION
  Report Type: Spontaneous
  Country: US (occurrence: US)
  Receive Date: 20160321
  Receipt Date: 20160321
  Transmission Date: 20160526
  Serious: Yes (Other)
  Sender: FDA-Public Use
  Company Number: US-ALLERGAN-1525647US

PATIENT
  Sex: Male

DRUGS (2)
  1. OZURDEX [Suspect]
     Active Substance: DEXAMETHASONE
     Indication: CHOROIDITIS
     Dosage: 0.7 MG, SINGLE
     Route: 031
     Dates: start: 201504, end: 201504
  2. CEFADROXIL. [Concomitant]
     Active Substance: CEFADROXIL
     Indication: IMMUNE SYSTEM DISORDER

REACTIONS (6)
  - Visual acuity reduced [Recovered/Resolved]
  - Device dislocation [Not Recovered/Not Resolved]
  - Corneal scar [Not Recovered/Not Resolved]
  - Vision blurred [Not Recovered/Not Resolved]
  - Off label use [Unknown]
  - Device defective [Not Recovered/Not Resolved]

NARRATIVE: CASE EVENT DATE: 2015
